FAERS Safety Report 13005666 (Version 1)
Quarter: 2016Q4

REPORT INFORMATION
  Report Type: Spontaneous
  Country: US (occurrence: US)
  Receive Date: 20161207
  Receipt Date: 20161207
  Transmission Date: 20170207
  Serious: Yes (Hospitalization, Other)
  Sender: FDA-Public Use
  Company Number: US-AMGEN-USASP2016169333

PATIENT
  Age: 57 Year
  Sex: Female

DRUGS (2)
  1. NEULASTA [Suspect]
     Active Substance: PEGFILGRASTIM
     Indication: PRODUCT USED FOR UNKNOWN INDICATION
     Dosage: UNK, AFTER CHEMO
     Route: 065
     Dates: start: 201501
  2. ARIMIDEX [Concomitant]
     Active Substance: ANASTROZOLE
     Indication: UTERINE CANCER
     Dosage: UNK
     Dates: start: 201501

REACTIONS (5)
  - Musculoskeletal pain [Not Recovered/Not Resolved]
  - Sleep disorder due to general medical condition, insomnia type [Not Recovered/Not Resolved]
  - Exostosis [Not Recovered/Not Resolved]
  - Activities of daily living impaired [Unknown]
  - Recurrent cancer [Unknown]

NARRATIVE: CASE EVENT DATE: 2015
